FAERS Safety Report 10913437 (Version 2)
Quarter: 2015Q1

REPORT INFORMATION
  Report Type: Spontaneous
  Country: US (occurrence: US)
  Receive Date: 20150313
  Receipt Date: 20150319
  Transmission Date: 20150721
  Serious: Yes (Other)
  Sender: FDA-Public Use
  Company Number: US-BAYER-2015-036066

PATIENT
  Age: 44 Year
  Sex: Female

DRUGS (1)
  1. MIRENA [Suspect]
     Active Substance: LEVONORGESTREL
     Indication: MENORRHAGIA
     Dosage: 20 MCG/24HR, CONT
     Route: 015
     Dates: start: 20141022

REACTIONS (6)
  - Haemorrhagic anaemia [None]
  - Pollakiuria [None]
  - Pain [None]
  - Genital haemorrhage [None]
  - Urinary incontinence [Recovering/Resolving]
  - Back pain [None]

NARRATIVE: CASE EVENT DATE: 201411
